FAERS Safety Report 5283998-1 (Version None)
Quarter: 2007Q1

REPORT INFORMATION
  Report Type: 
  Country: None (occurrence: None)
  Receive Date: 20070327
  Receipt Date: 20070323
  Transmission Date: 20070707
  Serious: Yes (Hospitalization)
  Sender: FDA-Public Use
  Company Number: AMI0001738

PATIENT
  Age: 57 Year
  Sex: Female

DRUGS (1)
  1. PENICILLAMINE [Suspect]
     Indication: ARTHRITIS
     Dosage: 200MG PO QD
     Route: 048

REACTIONS (3)
  - BRONCHIAL OBSTRUCTION [None]
  - LYMPHOCYTIC INFILTRATION [None]
  - OBLITERATIVE BRONCHIOLITIS [None]
